FAERS Safety Report 23528127 (Version 1)
Quarter: 2024Q1

REPORT INFORMATION
  Report Type: Spontaneous
  Country: CN (occurrence: CN)
  Receive Date: 20240215
  Receipt Date: 20240215
  Transmission Date: 20240409
  Serious: Yes (Other)
  Sender: FDA-Public Use
  Company Number: CN-ELI_LILLY_AND_COMPANY-CN202402002914

PATIENT
  Age: 15 Year
  Sex: Female

DRUGS (3)
  1. FLUOXETINE HYDROCHLORIDE [Suspect]
     Active Substance: FLUOXETINE HYDROCHLORIDE
     Indication: Suicide attempt
     Dosage: 28 DOSAGE FORM, SINGLE
     Route: 048
     Dates: start: 20240101, end: 20240101
  2. AGOMELATINE [Suspect]
     Active Substance: AGOMELATINE
     Indication: Suicide attempt
     Dosage: 28 DOSAGE FORM, SINGLE
     Route: 048
     Dates: start: 20240101, end: 20240101
  3. ALPRAZOLAM [Suspect]
     Active Substance: ALPRAZOLAM
     Indication: Suicide attempt
     Dosage: 7 DOSAGE FORM, SINGLE
     Route: 048
     Dates: start: 20240101, end: 20240101

REACTIONS (3)
  - Toxicity to various agents [Recovering/Resolving]
  - Dizziness [Recovering/Resolving]
  - Intentional overdose [Recovering/Resolving]

NARRATIVE: CASE EVENT DATE: 20240101
